FAERS Safety Report 9948607 (Version 2)
Quarter: 2014Q1

REPORT INFORMATION
  Report Type: Report from Study
  Country: US (occurrence: US)
  Receive Date: 20140303
  Receipt Date: 20140303
  Transmission Date: 20141002
  Serious: No
  Sender: FDA-Public Use
  Company Number: US-ABBVIE-13P-163-1047989-00

PATIENT
  Age: 22 Year
  Sex: Female

DRUGS (11)
  1. HUMIRA [Suspect]
     Indication: COLITIS ULCERATIVE
     Dates: start: 20121030
  2. HUMIRA [Suspect]
  3. LIALDA [Concomitant]
     Indication: COLITIS ULCERATIVE
  4. AZATHIOPRINE [Concomitant]
     Indication: COLITIS ULCERATIVE
  5. SERTRALINE [Concomitant]
     Indication: ANXIETY
  6. ADVAIR HFA [Concomitant]
     Indication: ASTHMA
  7. GENERESS FE [Concomitant]
     Indication: CONTRACEPTION
  8. VITAMIN C [Concomitant]
     Indication: PRODUCT USED FOR UNKNOWN INDICATION
  9. MULTIPLE VITAMINS [Concomitant]
     Indication: PRODUCT USED FOR UNKNOWN INDICATION
  10. KLONOPIN [Concomitant]
     Indication: ANXIETY
     Dosage: LOW DOSE
  11. KLONOPIN [Concomitant]
     Indication: PANIC ATTACK

REACTIONS (6)
  - Haematochezia [Recovering/Resolving]
  - Asthenia [Recovering/Resolving]
  - Nausea [Recovering/Resolving]
  - Fatigue [Recovering/Resolving]
  - Metrorrhagia [Recovering/Resolving]
  - Drug ineffective [Recovering/Resolving]
